FAERS Safety Report 4332374-4 (Version None)
Quarter: 2004Q2

REPORT INFORMATION
  Report Type: 
  Country: None (occurrence: None)
  Receive Date: 20040401
  Receipt Date: 20040315
  Transmission Date: 20050107
  Serious: Yes (Other)
  Sender: FDA-Public Use
  Company Number: JP-JNJFOC-20040305044

PATIENT
  Sex: Female

DRUGS (2)
  1. ORTHO M-21 (ETHINYLESTRADIOL/NORETHINDRONE) TABLETS [Suspect]
     Indication: ENDOMETRIOSIS
  2. MELATONIN (MELATONIN) [Concomitant]

REACTIONS (3)
  - DEAFNESS [None]
  - SUDDEN HEARING LOSS [None]
  - TINNITUS [None]
